FAERS Safety Report 21176750 (Version 1)
Quarter: 2022Q3

REPORT INFORMATION
  Report Type: Spontaneous
  Country: US (occurrence: US)
  Receive Date: 20220805
  Receipt Date: 20220805
  Transmission Date: 20221026
  Serious: Yes (Hospitalization)
  Sender: FDA-Public Use
  Company Number: US-MYLANLABS-2022M1083825

PATIENT
  Age: 65 Year
  Sex: Male

DRUGS (1)
  1. HEPARIN [Suspect]
     Active Substance: HEPARIN SODIUM
     Indication: Thrombosis prophylaxis
     Dosage: LOW-DOSE; ADMINISTERED EVERY 8 HOURS
     Route: 065

REACTIONS (2)
  - Pyrexia [Recovered/Resolved]
  - Heparin-induced thrombocytopenia [Recovered/Resolved]
